FAERS Safety Report 4659864-9 (Version None)
Quarter: 2005Q2

REPORT INFORMATION
  Report Type: 
  Country: None (occurrence: None)
  Receive Date: 20050510
  Receipt Date: 20050427
  Transmission Date: 20051028
  Serious: Yes (Other)
  Sender: FDA-Public Use
  Company Number: BEWYE644104MAY05

PATIENT
  Sex: Male

DRUGS (1)
  1. EFFEXOR [Suspect]
     Dosage: 75 + 150 MG 1X PER 1 DAY ORAL
     Route: 048

REACTIONS (1)
  - EPILEPSY [None]
